FAERS Safety Report 10310980 (Version 7)
Quarter: 2015Q3

REPORT INFORMATION
  Report Type: Spontaneous
  Country: US (occurrence: US)
  Receive Date: 20140717
  Receipt Date: 20150714
  Transmission Date: 20151125
  Serious: Yes (Death, Hospitalization, Disabling, Other)
  Sender: FDA-Public Use
  Company Number: US-MERCK-1407USA006809

PATIENT
  Sex: Male
  Weight: 130.16 kg

DRUGS (2)
  1. VICTOZA [Suspect]
     Active Substance: LIRAGLUTIDE
     Indication: TYPE 2 DIABETES MELLITUS
     Dosage: 18 MG, QD
     Dates: start: 201007, end: 201107
  2. JANUVIA [Suspect]
     Active Substance: SITAGLIPTIN PHOSPHATE
     Indication: TYPE 2 DIABETES MELLITUS
     Dosage: 100 MG, QD
     Route: 048
     Dates: start: 200711, end: 20110924

REACTIONS (38)
  - Rectal haemorrhage [Recovering/Resolving]
  - Haematocrit abnormal [Unknown]
  - Splenomegaly [Unknown]
  - Drug ineffective [Unknown]
  - Pancreatic carcinoma metastatic [Fatal]
  - Hyperkalaemia [Unknown]
  - Anaemia [Recovering/Resolving]
  - Acute kidney injury [Unknown]
  - Duodenitis [Unknown]
  - Bile duct stent insertion [Unknown]
  - Hypertension [Unknown]
  - Gout [Unknown]
  - Nephrolithiasis [Unknown]
  - Gastric ulcer [Unknown]
  - Constipation [Unknown]
  - Cardio-respiratory arrest [Fatal]
  - Metastases to lung [Unknown]
  - Ascites [Unknown]
  - Deep vein thrombosis [Unknown]
  - Sleep apnoea syndrome [Unknown]
  - Nail disorder [Unknown]
  - Diverticulum [Unknown]
  - Type 1 diabetes mellitus [Unknown]
  - Splenic infarction [Unknown]
  - Melaena [Unknown]
  - Gastrointestinal haemorrhage [Unknown]
  - Dermatitis atopic [Unknown]
  - Oedema [Unknown]
  - Haemorrhoids [Unknown]
  - Headache [Unknown]
  - Gastrointestinal haemorrhage [Unknown]
  - Hepatic lesion [Unknown]
  - Metastasis [Fatal]
  - Hepatic cancer metastatic [Unknown]
  - Oedema peripheral [Recovered/Resolved]
  - Coagulopathy [Unknown]
  - Hyperbilirubinaemia [Unknown]
  - Oedema peripheral [Unknown]

NARRATIVE: CASE EVENT DATE: 20110113
